FAERS Safety Report 7420706-X (Version None)
Quarter: 2011Q2

REPORT INFORMATION
  Report Type: 
  Country: None (occurrence: None)
  Receive Date: 20110418
  Receipt Date: 20100908
  Transmission Date: 20111010
  Serious: Yes (Other)
  Sender: FDA-Public Use
  Company Number: US-BAYER-201019706NA

PATIENT
  Age: 16 Year
  Sex: Female
  Weight: 91.364 kg

DRUGS (6)
  1. OCELLA [Suspect]
     Route: 048
  2. YAZ [Suspect]
     Dosage: REFILLED ON 18-JUL-2007
     Route: 048
     Dates: start: 20070701, end: 20070801
  3. YAZ [Suspect]
     Dosage: UNK
     Dates: start: 20071001, end: 20080101
  4. YAZ [Suspect]
     Dosage: UNK
     Dates: end: 20081001
  5. YAZ [Suspect]
     Dosage: UNK
     Dates: start: 20080301, end: 20080501
  6. YASMIN [Suspect]
     Route: 048

REACTIONS (2)
  - CHEST PAIN [None]
  - GALLBLADDER DISORDER [None]
